FAERS Safety Report 8204166-7 (Version None)
Quarter: 2012Q1

REPORT INFORMATION
  Report Type: 
  Country: None (occurrence: None)
  Receive Date: 20120313
  Receipt Date: 20120229
  Transmission Date: 20120608
  Serious: Yes (Hospitalization)
  Sender: FDA-Public Use
  Company Number: FR-ASTELLAS-2012US002573

PATIENT
  Weight: 26 kg

DRUGS (9)
  1. CLONAZEPAM [Concomitant]
     Indication: PAIN
     Dosage: 0.25 MG, UNKNOWN/D
     Route: 065
     Dates: start: 20120209
  2. ACETAMINOPHEN [Concomitant]
     Indication: PAIN
     Dosage: 365 MG, UNKNOWN/D
     Route: 042
     Dates: start: 20120210
  3. MELPHALAN HYDROCHLORIDE [Concomitant]
     Indication: PRODUCT USED FOR UNKNOWN INDICATION
     Dosage: UNK
     Route: 065
  4. BUSULFAN [Concomitant]
     Indication: PRODUCT USED FOR UNKNOWN INDICATION
     Dosage: UNK
     Route: 065
  5. AMBISOME [Suspect]
     Indication: PRODUCT USED FOR UNKNOWN INDICATION
     Dosage: 3 MG/KG, UNKNOWN/D
     Route: 042
     Dates: start: 20120210, end: 20120210
  6. MEPERIDINE HCL [Concomitant]
     Indication: PRODUCT USED FOR UNKNOWN INDICATION
     Dosage: 2 MG PER HOUR
     Route: 042
     Dates: start: 20120206
  7. DEFIBROTIDE [Concomitant]
     Indication: PRODUCT USED FOR UNKNOWN INDICATION
     Dosage: UNK
     Route: 065
  8. TARGOCID [Concomitant]
     Indication: FEBRILE BONE MARROW APLASIA
     Dosage: 270 MG, UNKNOWN/D
     Route: 042
     Dates: start: 20120209
  9. CEFTAZIDIME [Concomitant]
     Indication: FEBRILE BONE MARROW APLASIA
     Dosage: 2700 MG, UNKNOWN/D
     Route: 042
     Dates: start: 20120209

REACTIONS (5)
  - PRURITUS [None]
  - VOMITING [None]
  - LOSS OF CONSCIOUSNESS [None]
  - ABDOMINAL PAIN [None]
  - CHEST PAIN [None]
